FAERS Safety Report 5647943-9 (Version None)
Quarter: 2008Q1

REPORT INFORMATION
  Report Type: 
  Country: None (occurrence: None)
  Receive Date: 20080229
  Receipt Date: 20080222
  Transmission Date: 20080703
  Serious: Yes (Death)
  Sender: FDA-Public Use
  Company Number: L08-USA-00315-02

PATIENT
  Age: 55 Year
  Sex: Female

DRUGS (6)
  1. ESCITALOPRAM OXALATE [Suspect]
  2. ACETAMINOPHEN [Suspect]
  3. HYDROCODONE BITARTRATE [Suspect]
  4. CLONAZEPAM [Suspect]
  5. LISINOPRIL [Suspect]
  6. COCAINE [Suspect]

REACTIONS (2)
  - COMPLETED SUICIDE [None]
  - MULTIPLE DRUG OVERDOSE [None]
